FAERS Safety Report 15424739 (Version 5)
Quarter: 2019Q2

REPORT INFORMATION
  Report Type: Spontaneous
  Country: IT (occurrence: IT)
  Receive Date: 20180925
  Receipt Date: 20190610
  Transmission Date: 20190711
  Serious: Yes (Hospitalization, Other)
  Sender: FDA-Public Use
  Company Number: IT-MYLANLABS-2018M1069478

PATIENT
  Age: 52 Year
  Sex: Male

DRUGS (10)
  1. CAPECITABINE. [Concomitant]
     Active Substance: CAPECITABINE
     Indication: PENILE CANCER
     Dosage: UNK
  2. CISPLATIN. [Suspect]
     Active Substance: CISPLATIN
     Indication: PENILE SQUAMOUS CELL CARCINOMA
     Dosage: 1 CYCLICAL
     Route: 065
     Dates: start: 201509
  3. CISPLATIN. [Suspect]
     Active Substance: CISPLATIN
     Indication: NEOPLASM MALIGNANT
  4. DOCETAXEL. [Suspect]
     Active Substance: DOCETAXEL
     Indication: NEOPLASM MALIGNANT
  5. DOCETAXEL. [Suspect]
     Active Substance: DOCETAXEL
     Indication: PENILE SQUAMOUS CELL CARCINOMA
     Dosage: UNK
     Route: 065
  6. CAPECITABINE. [Concomitant]
     Active Substance: CAPECITABINE
     Indication: PENILE SQUAMOUS CELL CARCINOMA
  7. DOCETAXEL. [Suspect]
     Active Substance: DOCETAXEL
     Indication: PENILE CANCER
     Dosage: 1 UNK, QW(QW WEEKLY ADMINISTRATIONS IN CYCLE)
     Route: 065
     Dates: start: 201509, end: 201607
  8. DOCETAXEL. [Suspect]
     Active Substance: DOCETAXEL
     Indication: METASTASES TO LYMPH NODES
     Dosage: 2 ONCE WEEKLY CYCLES
     Route: 065
     Dates: start: 201611
  9. CISPLATIN. [Suspect]
     Active Substance: CISPLATIN
     Indication: PENILE CANCER
     Dosage: UNK
     Route: 065
     Dates: start: 201506
  10. FLUOROURACIL. [Concomitant]
     Active Substance: FLUOROURACIL
     Indication: PENILE CANCER
     Dosage: UNK
     Route: 065
     Dates: start: 201506, end: 201509

REACTIONS (10)
  - Blood bilirubin increased [Recovering/Resolving]
  - Atypical haemolytic uraemic syndrome [Unknown]
  - Anuria [Not Recovered/Not Resolved]
  - Blood creatinine increased [Recovering/Resolving]
  - Thrombocytopenia [Recovered/Resolved]
  - Haemolytic anaemia [Recovering/Resolving]
  - Off label use [Unknown]
  - Neurotoxicity [Unknown]
  - Haemoglobinaemia [Recovered/Resolved]
  - Blood lactate dehydrogenase increased [Recovered/Resolved]

NARRATIVE: CASE EVENT DATE: 201607
